FAERS Safety Report 18695403 (Version 1)
Quarter: 2021Q1

REPORT INFORMATION
  Report Type: Spontaneous
  Country: US (occurrence: US)
  Receive Date: 20210103
  Receipt Date: 20210103
  Transmission Date: 20210419
  Serious: Yes (Other)
  Sender: FDA-Public Use
  Company Number: None

PATIENT
  Age: 60 Year
  Sex: Female
  Weight: 54.9 kg

DRUGS (1)
  1. TRAMADOL 50 MG TAB NDC: 29300?0355?10 [Suspect]
     Active Substance: TRAMADOL HYDROCHLORIDE
     Indication: PAIN
     Dosage: ?          QUANTITY:120 TABLET(S);?
     Route: 048
     Dates: start: 20210101, end: 20210103

REACTIONS (7)
  - Tinnitus [None]
  - Discomfort [None]
  - Malaise [None]
  - Product substitution issue [None]
  - Dizziness [None]
  - Eye pain [None]
  - Drug ineffective [None]

NARRATIVE: CASE EVENT DATE: 20210101
